FAERS Safety Report 9643687 (Version 1)
Quarter: 2013Q4

REPORT INFORMATION
  Report Type: Spontaneous
  Country: FR (occurrence: FR)
  Receive Date: 20131024
  Receipt Date: 20131024
  Transmission Date: 20140711
  Serious: Yes (Hospitalization)
  Sender: FDA-Public Use
  Company Number: FR-BRISTOL-MYERS SQUIBB COMPANY-19583137

PATIENT
  Age: 38 Year
  Sex: Male

DRUGS (6)
  1. COUMADINE [Suspect]
     Indication: CARDIOMYOPATHY
     Dosage: INITIALLY 4MG?REDUCED TO 5 MG
     Route: 048
  2. PARACETAMOL [Interacting]
     Indication: NEURALGIA
     Route: 048
  3. ZYLORIC [Interacting]
     Indication: GOUT
     Route: 048
  4. REVATIO [Concomitant]
     Indication: PULMONARY ARTERIAL HYPERTENSION
     Route: 048
     Dates: start: 201302
  5. KREDEX [Concomitant]
     Indication: CARDIOMYOPATHY
     Route: 048
  6. RENITEC [Concomitant]
     Indication: VENTRICULAR TACHYCARDIA
     Route: 048

REACTIONS (2)
  - International normalised ratio increased [Recovered/Resolved]
  - Drug interaction [Unknown]
